FAERS Safety Report 21322320 (Version 1)
Quarter: 2022Q3

REPORT INFORMATION
  Report Type: Spontaneous
  Country: US (occurrence: None)
  Receive Date: 20220911
  Receipt Date: 20220911
  Transmission Date: 20221027
  Serious: Yes (Hospitalization, Other)
  Sender: FDA-Public Use
  Company Number: None

PATIENT
  Age: 48 Year
  Sex: Female

DRUGS (1)
  1. .DELTA.8-TETRAHYDROCANNABINOL\HERBALS [Suspect]
     Active Substance: .DELTA.8-TETRAHYDROCANNABINOL\HERBALS
     Indication: Pain
     Route: 048
     Dates: start: 20220910, end: 20220910

REACTIONS (6)
  - Throat tightness [None]
  - Dyspnoea [None]
  - Palpitations [None]
  - Feeling abnormal [None]
  - Respiratory rate increased [None]
  - Product label issue [None]

NARRATIVE: CASE EVENT DATE: 20220910
